FAERS Safety Report 9932821 (Version 1)
Quarter: 2014Q1

REPORT INFORMATION
  Report Type: Spontaneous
  Country: US (occurrence: US)
  Receive Date: 20140228
  Receipt Date: 20140228
  Transmission Date: 20141002
  Serious: No
  Sender: FDA-Public Use
  Company Number: US-GLAXOSMITHKLINE-A1031987A

PATIENT
  Age: 64 Year
  Sex: Female

DRUGS (4)
  1. LAMOTRIGINE [Suspect]
     Indication: PRODUCT USED FOR UNKNOWN INDICATION
     Dosage: 400MG AT NIGHT
     Route: 048
     Dates: start: 201010
  2. DOXEPIN [Concomitant]
  3. LEXAPRO [Concomitant]
  4. VALIUM [Concomitant]

REACTIONS (1)
  - Drug screen positive [Unknown]
